FAERS Safety Report 19035594 (Version 1)
Quarter: 2021Q1

REPORT INFORMATION
  Report Type: Spontaneous
  Country: JP (occurrence: JP)
  Receive Date: 20210320
  Receipt Date: 20210320
  Transmission Date: 20210420
  Serious: Yes (Death)
  Sender: FDA-Public Use
  Company Number: JP-SEPTODONT-2021006182

PATIENT
  Age: 39 Year
  Sex: Female

DRUGS (3)
  1. SCANDONEST PLAIN [Suspect]
     Active Substance: MEPIVACAINE HYDROCHLORIDE
     Dosage: ABOUT 30 CARTRIDGES (1.8ML)
     Route: 004
     Dates: start: 20200520, end: 20200520
  2. XYLOCAINE CARTRIDGE [Concomitant]
     Dosage: DOSAGE UNKNOWN
     Route: 004
     Dates: start: 20200520, end: 20200520
  3. CITANEST 3% WITH OCTAPRESSIN [Concomitant]
     Dosage: DOSAGE UNKNOWN
     Route: 004
     Dates: start: 20200520, end: 20200520

REACTIONS (2)
  - Respiratory arrest [Fatal]
  - Overdose [Fatal]

NARRATIVE: CASE EVENT DATE: 20200520
